FAERS Safety Report 10945593 (Version 1)
Quarter: 2015Q1

REPORT INFORMATION
  Report Type: Spontaneous
  Country: US (occurrence: US)
  Receive Date: 20150323
  Receipt Date: 20150323
  Transmission Date: 20150721
  Serious: No
  Sender: FDA-Public Use
  Company Number: US-ASTRAZENECA-2015SE22984

PATIENT
  Age: 72 Year
  Sex: Female

DRUGS (3)
  1. DUONEB [Concomitant]
     Active Substance: ALBUTEROL SULFATE\IPRATROPIUM BROMIDE
  2. ADVAIR DISKUS [Suspect]
     Active Substance: FLUTICASONE PROPIONATE\SALMETEROL XINAFOATE
     Indication: LUNG NEOPLASM MALIGNANT
     Route: 055
  3. SYMBICORT [Suspect]
     Active Substance: BUDESONIDE\FORMOTEROL FUMARATE DIHYDRATE
     Indication: LUNG DISORDER
     Dosage: 1PUFF BID
     Route: 055
     Dates: start: 2013

REACTIONS (6)
  - Pulmonary hypertension [Unknown]
  - Malaise [Unknown]
  - Arthropod bite [Unknown]
  - Pneumonia [Unknown]
  - Off label use [Unknown]
  - Infected bites [Unknown]

NARRATIVE: CASE EVENT DATE: 2013
